FAERS Safety Report 10037665 (Version 2)
Quarter: 2014Q1

REPORT INFORMATION
  Report Type: Spontaneous
  Country: US (occurrence: US)
  Receive Date: 20140326
  Receipt Date: 20140327
  Transmission Date: 20141002
  Serious: No
  Sender: FDA-Public Use
  Company Number: US-PFIZER INC-2014084728

PATIENT
  Sex: Female
  Weight: 51.7 kg

DRUGS (3)
  1. PRISTIQ [Suspect]
     Indication: DEPRESSION
     Dosage: 50 MG, 3X/DAY
     Route: 048
     Dates: start: 201311, end: 201402
  2. TRAZODONE [Concomitant]
     Dosage: 100 MG, 3X/DAY
  3. DEXTROAMPHETAMINE [Concomitant]
     Dosage: 10 MG, 2X/DAY

REACTIONS (5)
  - Intentional drug misuse [Unknown]
  - Weight increased [Not Recovered/Not Resolved]
  - Fluid retention [Not Recovered/Not Resolved]
  - Drug withdrawal syndrome [Unknown]
  - Gait disturbance [Unknown]
